FAERS Safety Report 4709229-6 (Version None)
Quarter: 2005Q3

REPORT INFORMATION
  Report Type: 
  Country: None (occurrence: None)
  Receive Date: 20050706
  Receipt Date: 20050620
  Transmission Date: 20060218
  Serious: Yes (Other)
  Sender: FDA-Public Use
  Company Number: 210679

PATIENT
  Age: 28 Year
  Sex: Female

DRUGS (4)
  1. XOLAIR [Suspect]
     Indication: ASTHMA
     Dosage: 375 MG, 2/WEEK, SUBCUTANEOUS
     Route: 058
     Dates: start: 20041106
  2. STEROIDS NOS (STEROID NOS) [Suspect]
  3. CORTICOSTEROIDS (CORTICOSTEROID NOS) [Concomitant]
  4. ANTIBIOTICS-INTRAVENOUS (ANTIBIOTICS NOS) [Concomitant]

REACTIONS (9)
  - ASTHMA [None]
  - BALANCE DISORDER [None]
  - DRUG RESISTANCE [None]
  - EOSINOPHIL COUNT INCREASED [None]
  - MYOPATHY STEROID [None]
  - NASAL CONGESTION [None]
  - RHINITIS ALLERGIC [None]
  - SINUSITIS [None]
  - STAPHYLOCOCCAL INFECTION [None]
